FAERS Safety Report 18986874 (Version 1)
Quarter: 2021Q1

REPORT INFORMATION
  Report Type: Spontaneous
  Country: US (occurrence: US)
  Receive Date: 20210309
  Receipt Date: 20210309
  Transmission Date: 20210420
  Serious: No
  Sender: FDA-Public Use
  Company Number: US-PFIZER INC-2021147008

PATIENT
  Age: 62 Year
  Sex: Female

DRUGS (1)
  1. XELJANZ XR [Suspect]
     Active Substance: TOFACITINIB CITRATE
     Dosage: 11 MG, DAILY (XELJANZ TABLETS 11 MG PO QD (PER ORAL EVERY DAY))
     Route: 048

REACTIONS (2)
  - Joint swelling [Unknown]
  - Abdominal pain [Recovered/Resolved]
